FAERS Safety Report 24051208 (Version 2)
Quarter: 2024Q4

REPORT INFORMATION
  Report Type: Report from Study
  Country: US (occurrence: US)
  Receive Date: 20240704
  Receipt Date: 20241125
  Transmission Date: 20250114
  Serious: Yes (Hospitalization, Other)
  Sender: SANOFI AVENTIS
  Company Number: US-SANOFI-02115169

PATIENT
  Age: 69 Year
  Sex: Male

DRUGS (10)
  1. DUPILUMAB [Suspect]
     Active Substance: DUPILUMAB
     Indication: Asthma
     Dosage: 300 MG, QOW
     Route: 058
     Dates: start: 20240404
  2. MUCINEX [Concomitant]
     Active Substance: GUAIFENESIN
  3. PRILOSEC [Concomitant]
     Active Substance: OMEPRAZOLE MAGNESIUM
  4. VITAMINS NOS [Concomitant]
     Active Substance: VITAMINS
  5. CHOLECALCIFEROL [Concomitant]
     Active Substance: CHOLECALCIFEROL
  6. METOPROLOL [Concomitant]
     Active Substance: METOPROLOL
  7. FARXIGA [Concomitant]
     Active Substance: DAPAGLIFLOZIN PROPANEDIOL
  8. ELIQUIS [Concomitant]
     Active Substance: APIXABAN
  9. ENTRESTO [Concomitant]
     Active Substance: SACUBITRIL\VALSARTAN
  10. LUPRON DEPOT [Concomitant]
     Active Substance: LEUPROLIDE ACETATE

REACTIONS (4)
  - Pneumonia influenzal [Unknown]
  - Dyspnoea [Unknown]
  - Accidental exposure to product [Unknown]
  - Exposure via skin contact [Unknown]

NARRATIVE: CASE EVENT DATE: 20240627
